FAERS Safety Report 9516292 (Version 1)
Quarter: 2013Q3

REPORT INFORMATION
  Report Type: Spontaneous
  Country: CN (occurrence: CN)
  Receive Date: 20130911
  Receipt Date: 20130911
  Transmission Date: 20140515
  Serious: Yes (Other)
  Sender: FDA-Public Use
  Company Number: CN-ROCHE-1272789

PATIENT
  Sex: Male
  Weight: 49 kg

DRUGS (1)
  1. RITUXIMAB [Suspect]
     Indication: NON-HODGKIN^S LYMPHOMA
     Route: 042
     Dates: start: 20120320, end: 20120620

REACTIONS (1)
  - Hepatic function abnormal [Recovering/Resolving]
